FAERS Safety Report 9017334 (Version 1)
Quarter: 2013Q1

REPORT INFORMATION
  Report Type: Spontaneous
  Country: US (occurrence: US)
  Receive Date: 20130117
  Receipt Date: 20130117
  Transmission Date: 20140127
  Serious: No
  Sender: FDA-Public Use
  Company Number: US-PFIZER INC-2013018296

PATIENT
  Age: 60 Year
  Sex: Male
  Weight: 96.6 kg

DRUGS (1)
  1. ARTHROTEC [Suspect]

REACTIONS (1)
  - Drug hypersensitivity [Unknown]
